FAERS Safety Report 5787099-5 (Version None)
Quarter: 2008Q2

REPORT INFORMATION
  Report Type: 
  Country: None (occurrence: None)
  Receive Date: 20080618
  Receipt Date: 20080610
  Transmission Date: 20081010
  Serious: Yes (Other)
  Sender: FDA-Public Use
  Company Number: 235584J08USA

PATIENT
  Age: 46 Year
  Sex: Female
  Weight: 79.3795 kg

DRUGS (3)
  1. REBIF [Suspect]
     Indication: MULTIPLE SCLEROSIS
     Dosage: 44 MCG, 3 IN 1 WEEKS, SUBCUTANEOUS
     Route: 058
     Dates: start: 20070905, end: 20080604
  2. IBUPROFEN [Concomitant]
  3. PREMARIN [Concomitant]

REACTIONS (3)
  - CHEST PAIN [None]
  - DYSPNOEA [None]
  - EXTRASYSTOLES [None]
